FAERS Safety Report 8479603 (Version 2)
Quarter: 2012Q4

REPORT INFORMATION
  Report Type: 
  Country: US (occurrence: US)
  Receive Date: 20120328
  Receipt Date: 20121019
  Transmission Date: 20130627
  Serious: Yes (Other)
  Sender: FDA-Public Use
  Company Number: US-US-EMD SERONO, INC.-7121099

PATIENT
  Sex: Female

DRUGS (3)
  1. REBIF [Suspect]
     Indication: MULTIPLE SCLEROSIS
     Route: 058
     Dates: start: 20110620, end: 20111206
  2. SPIRONOLACTONE [Concomitant]
     Indication: HORMONE LEVEL ABNORMAL
     Dates: start: 2001
  3. SPIRONOLACTONE [Concomitant]
     Indication: BLOOD PRESSURE

REACTIONS (4)
  - Suicidal ideation [Recovered/Resolved]
  - Depression [Recovered/Resolved]
  - Drug hypersensitivity [Recovering/Resolving]
  - Influenza [Recovering/Resolving]
